FAERS Safety Report 25929558 (Version 1)
Quarter: 2025Q4

REPORT INFORMATION
  Report Type: Spontaneous
  Country: EU (occurrence: EU)
  Receive Date: 20251016
  Receipt Date: 20251016
  Transmission Date: 20260117
  Serious: Yes (Hospitalization)
  Sender: TEVA
  Company Number: None

PATIENT
  Age: 8 Year
  Sex: Female
  Weight: 26.6 kg

DRUGS (4)
  1. VINCRISTINE [Suspect]
     Active Substance: VINCRISTINE
     Indication: Lymphoma
     Dosage: VINCRISTINE SULFATE
     Route: 042
     Dates: start: 20250731, end: 20250818
  2. CYTARABINE [Suspect]
     Active Substance: CYTARABINE
     Indication: Lymphoma
     Route: 042
     Dates: start: 20250731, end: 20250818
  3. METHOTREXATE [Suspect]
     Active Substance: METHOTREXATE
     Indication: Lymphoma
     Dosage: METHOTREXATE VIATRIS 50 MG/2 ML
     Route: 037
     Dates: start: 20250729, end: 20250812
  4. ACYCLOVIR [Suspect]
     Active Substance: ACYCLOVIR
     Indication: Oral herpes
     Dosage: ACICLOVIR VIATRIS
     Route: 042
     Dates: start: 20250811, end: 20250822

REACTIONS (1)
  - Encephalitis [Recovered/Resolved]

NARRATIVE: CASE EVENT DATE: 20250820
